FAERS Safety Report 7322195-2 (Version None)
Quarter: 2011Q1

REPORT INFORMATION
  Report Type: 
  Country: None (occurrence: None)
  Receive Date: 20110228
  Receipt Date: 20110221
  Transmission Date: 20110831
  Serious: Yes (Hospitalization)
  Sender: FDA-Public Use
  Company Number: BR-BRISTOL-MYERS SQUIBB COMPANY-15562994

PATIENT
  Age: 50 Year
  Sex: Female

DRUGS (3)
  1. METHOTREXATE [Suspect]
     Dates: start: 20081205
  2. PREDNISONE [Concomitant]
     Dates: start: 20081205
  3. ABATACEPT [Suspect]
     Indication: RHEUMATOID ARTHRITIS
     Dosage: INTERRUPTED ON 15FEB11
     Route: 058
     Dates: start: 20090218

REACTIONS (2)
  - HEADACHE [None]
  - DYSARTHRIA [None]
